FAERS Safety Report 12067894 (Version 1)
Quarter: 2016Q1

REPORT INFORMATION
  Report Type: Spontaneous
  Country: US (occurrence: US)
  Receive Date: 20160211
  Receipt Date: 20160211
  Transmission Date: 20160526
  Serious: No
  Sender: FDA-Public Use
  Company Number: US-SMITH AND NEPHEW, INC-2015SMT00139

PATIENT
  Sex: Female

DRUGS (11)
  1. REGRANEX [Suspect]
     Active Substance: BECAPLERMIN
     Indication: SKIN ULCER
     Dosage: 1 DOSAGE UNITS, 1X/DAY
     Route: 061
     Dates: start: 20150527
  2. INSULIN 70/30 [Concomitant]
     Active Substance: INSULIN HUMAN
     Dosage: 36 UNK, UNK
  3. CARDIZEM [Concomitant]
     Active Substance: DILTIAZEM HYDROCHLORIDE
     Dosage: 300 MG, 1X/DAY
  4. CELEBREX [Concomitant]
     Active Substance: CELECOXIB
     Dosage: 50 MG, 1X/DAY
  5. HYDROCHLOROTHIAZIDE. [Concomitant]
     Active Substance: HYDROCHLOROTHIAZIDE
     Dosage: 10 MG, 1X/DAY
  6. COQ10 [Concomitant]
     Active Substance: UBIDECARENONE
     Dosage: 60 MG, EVERY 48 HOURS
  7. LEVOTHYROXINE. [Concomitant]
     Active Substance: LEVOTHYROXINE
     Dosage: 100 ?G, 1X/DAY
  8. ASPIRIN. [Concomitant]
     Active Substance: ASPIRIN
     Dosage: 81 MG, 1X/DAY
  9. INSULIN 70/30 [Concomitant]
     Active Substance: INSULIN HUMAN
     Dosage: 40 U, 1X/DAY
  10. ZINC [Concomitant]
     Active Substance: ZINC\ZINC CHLORIDE
     Dosage: 50 MG, 1X/DAY
  11. COQ10 [Concomitant]
     Active Substance: UBIDECARENONE
     Dosage: 30 MG, EVERY 48 HOURS

REACTIONS (3)
  - Drug administration error [Recovered/Resolved]
  - Pruritus [Recovered/Resolved]
  - Wound secretion [Unknown]

NARRATIVE: CASE EVENT DATE: 2015
